FAERS Safety Report 9165381 (Version 1)
Quarter: 2013Q1

REPORT INFORMATION
  Report Type: Spontaneous
  Country: CA (occurrence: CA)
  Receive Date: 20130315
  Receipt Date: 20130315
  Transmission Date: 20140127
  Serious: Yes (Hospitalization)
  Sender: FDA-Public Use
  Company Number: PHHY2011CA108708

PATIENT
  Age: 63 Year
  Sex: Female

DRUGS (15)
  1. ACLASTA [Suspect]
     Indication: OSTEOPOROSIS
     Dosage: UNK UKN, UNK
     Route: 042
     Dates: start: 20081217
  2. ACLASTA [Suspect]
     Dosage: UNK UKN, UNK
     Route: 042
     Dates: start: 20091210
  3. ACLASTA [Suspect]
     Dosage: UNK UKN, UNK
     Route: 042
     Dates: start: 20101213
  4. ESTROGEL [Concomitant]
     Dosage: UNK UKN, UNK
  5. COLCHICINE [Concomitant]
     Dosage: UNK UKN, UNK
  6. URSO [Concomitant]
     Dosage: UNK UKN, UNK
  7. URSODIOL [Concomitant]
     Dosage: UNK UKN, UNK
  8. QVAR [Concomitant]
     Dosage: UNK UKN, UNK
  9. SYMBICORT [Concomitant]
     Dosage: UNK UKN, UNK
  10. PLAQUENIL [Concomitant]
     Dosage: UNK UKN, UNK
  11. NASONEX [Concomitant]
     Dosage: UNK UKN, UNK
  12. CARBOCAL D [Concomitant]
     Dosage: UNK UKN, UNK
  13. COZAAR [Concomitant]
     Dosage: UNK UKN, UNK
  14. PANTOLOC ^BYK GULDEN^ [Concomitant]
     Dosage: UNK UKN, UNK
  15. XANAX [Concomitant]
     Dosage: UNK UKN, UNK

REACTIONS (7)
  - Colon neoplasm [Unknown]
  - Rectal haemorrhage [Unknown]
  - Haematochezia [Unknown]
  - Anorectal disorder [Unknown]
  - Palpitations [Recovered/Resolved]
  - Influenza like illness [Recovered/Resolved]
  - Myalgia [Recovered/Resolved]
